FAERS Safety Report 21443850 (Version 1)
Quarter: 2022Q4

REPORT INFORMATION
  Report Type: Spontaneous
  Country: FR (occurrence: FR)
  Receive Date: 20221012
  Receipt Date: 20221012
  Transmission Date: 20230113
  Serious: Yes (Hospitalization)
  Sender: FDA-Public Use
  Company Number: None

PATIENT
  Age: 55 Year
  Sex: Female
  Weight: 125 kg

DRUGS (6)
  1. METFORMIN [Suspect]
     Active Substance: METFORMIN HYDROCHLORIDE
     Indication: Diabetes mellitus
     Dosage: 1000 MG, QD
     Route: 048
     Dates: start: 20220918, end: 20220920
  2. CEFOTAXIME SODIUM [Suspect]
     Active Substance: CEFOTAXIME SODIUM
     Indication: Pneumonia
     Dosage: 6 G, QD (2G, 3 TIMES A DAY)
     Route: 042
     Dates: start: 20220916, end: 20220920
  3. IVERMECTIN [Concomitant]
     Active Substance: IVERMECTIN
     Indication: Infection parasitic
     Dosage: 18 MG, QD (6 TABLETS / D)
     Route: 048
     Dates: start: 20220916, end: 20220917
  4. DEXAMETHASONE [Concomitant]
     Active Substance: DEXAMETHASONE
     Indication: COVID-19
     Dosage: 6 MG, QD
     Route: 048
     Dates: start: 20220915, end: 20220922
  5. LOVENOX [Concomitant]
     Active Substance: ENOXAPARIN SODIUM
     Indication: Bed rest
     Dosage: 0.4 ML
     Route: 042
     Dates: start: 20220915
  6. VENOFER [Concomitant]
     Active Substance: IRON SUCROSE
     Indication: Anaemia
     Dosage: 100 MG, QD
     Route: 042
     Dates: start: 20220916

REACTIONS (1)
  - Acute generalised exanthematous pustulosis [Not Recovered/Not Resolved]

NARRATIVE: CASE EVENT DATE: 20220919
